FAERS Safety Report 5293913-2 (Version None)
Quarter: 2007Q2

REPORT INFORMATION
  Report Type: 
  Country: None (occurrence: None)
  Receive Date: 20070411
  Receipt Date: 20070402
  Transmission Date: 20071010
  Serious: Yes (Other)
  Sender: FDA-Public Use
  Company Number: GB-PFIZER INC-2007026774

PATIENT
  Sex: Female

DRUGS (1)
  1. CARDURA [Suspect]
     Route: 048

REACTIONS (2)
  - ARTHRALGIA [None]
  - NERVE INJURY [None]
